FAERS Safety Report 4269463-9 (Version None)
Quarter: 2004Q1

REPORT INFORMATION
  Report Type: 
  Country: None (occurrence: None)
  Receive Date: 20040112
  Receipt Date: 20040112
  Transmission Date: 20041129
  Serious: Yes (Hospitalization)
  Sender: FDA-Public Use
  Company Number: None

PATIENT
  Weight: 94.91 kg

DRUGS (5)
  1. IBUPROFEN [Suspect]
     Indication: PAIN
     Dosage: OTC
  2. ASPIRIN [Suspect]
     Indication: PAIN
     Dosage: OTC
  3. FE GLUCONATE [Concomitant]
  4. FLEXERIL [Concomitant]
  5. FELODIPINE [Concomitant]

REACTIONS (2)
  - HAEMATEMESIS [None]
  - MELAENA [None]
